FAERS Safety Report 9648034 (Version 1)
Quarter: 2013Q4

REPORT INFORMATION
  Report Type: Spontaneous
  Country: US (occurrence: US)
  Receive Date: 20131028
  Receipt Date: 20131028
  Transmission Date: 20140711
  Serious: No
  Sender: FDA-Public Use
  Company Number: US-PFIZER INC-2013304870

PATIENT
  Age: 57 Year
  Sex: Female
  Weight: 58.96 kg

DRUGS (3)
  1. LYRICA [Suspect]
     Indication: NEUROPATHY PERIPHERAL
     Dosage: 150 MG, 2X/DAY
     Dates: end: 201310
  2. NORCO [Concomitant]
     Indication: BACK PAIN
     Dosage: HYDROCODONE BITARTRATE 10 MG/ ACETAMINOPHEN 325 MG, 2X/DAY
  3. NORCO [Concomitant]
     Indication: NECK PAIN

REACTIONS (3)
  - Nasopharyngitis [Unknown]
  - Pain [Unknown]
  - Gait disturbance [Unknown]
